FAERS Safety Report 8737922 (Version 2)
Quarter: 2012Q4

REPORT INFORMATION
  Report Type: Report from Study
  Country: DE (occurrence: DE)
  Receive Date: 20120823
  Receipt Date: 20121015
  Transmission Date: 20130627
  Serious: Yes (Hospitalization)
  Sender: FDA-Public Use
  Company Number: DE-AMGEN-DEUCT2012052716

PATIENT
  Age: 69 Year
  Sex: Female

DRUGS (10)
  1. ETANERCEPT [Suspect]
     Indication: PRODUCT USED FOR UNKNOWN INDICATION
     Dosage: UNK
     Dates: start: 201109, end: 201110
  2. METHOTREXATE SODIUM [Suspect]
     Dosage: 7.5 mg, weekly
     Route: 051
     Dates: start: 200208
  3. HYDROCHLOROTHIAZIDE [Concomitant]
     Dosage: 25 mg (1/2-0-0)
  4. METOPROLOL SUCCINATE [Concomitant]
     Dosage: 95 mg (1/2-0-0)
  5. RAMIPRIL [Concomitant]
     Dosage: 5 mg (1-0-1)
  6. L-THYROXIN [Concomitant]
     Dosage: 88 (1-0-0)
  7. LEXOTANIL [Concomitant]
     Dosage: (0-0-1/2)
  8. VOLTAREN RESINAT [Concomitant]
     Dosage: UNK, as needed
  9. CERTOLIZUMAB PEGOL [Concomitant]
     Dosage: UNK
     Dates: start: 201105, end: 201107
  10. VOLTAREN RESINAT ^GEIGY^ [Concomitant]
     Dosage: UNK, as needed

REACTIONS (2)
  - Ulcerative keratitis [Recovered/Resolved with Sequelae]
  - Corneal transplant [Unknown]
